FAERS Safety Report 26119607 (Version 1)
Quarter: 2025Q4

REPORT INFORMATION
  Report Type: Spontaneous
  Country: US (occurrence: US)
  Receive Date: 20251204
  Receipt Date: 20251204
  Transmission Date: 20260118
  Serious: No
  Sender: ABBVIE
  Company Number: US-ABBVIE-6573479

PATIENT
  Age: 58 Year
  Sex: Female
  Weight: 133.8 kg

DRUGS (1)
  1. HUMIRA [Suspect]
     Active Substance: ADALIMUMAB
     Indication: Hidradenitis
     Dosage: FORM STRENGTH: 80 MILLIGRAM
     Route: 058
     Dates: start: 2023

REACTIONS (3)
  - Wrong technique in product usage process [Not Recovered/Not Resolved]
  - Pain in extremity [Recovering/Resolving]
  - Injury associated with device [Recovering/Resolving]

NARRATIVE: CASE EVENT DATE: 20251128
